FAERS Safety Report 18864262 (Version 1)
Quarter: 2021Q1

REPORT INFORMATION
  Report Type: Spontaneous
  Country: IN (occurrence: IN)
  Receive Date: 20210209
  Receipt Date: 20210209
  Transmission Date: 20210420
  Serious: Yes (Death)
  Sender: FDA-Public Use
  Company Number: IN-CHEPLA-C20210646

PATIENT
  Age: 36 Year
  Sex: Female

DRUGS (1)
  1. GANCICLOVIR. [Suspect]
     Active Substance: GANCICLOVIR
     Indication: CYTOMEGALOVIRUS INFECTION
     Dosage: 300 MG, EVERY 12 HOURS, AN ADDITIONAL 3 UNITS OF PACKED CELL AND PLATELET TRANSFUSION.

REACTIONS (1)
  - Multiple organ dysfunction syndrome [Fatal]
